FAERS Safety Report 21527477 (Version 1)
Quarter: 2022Q4

REPORT INFORMATION
  Report Type: Spontaneous
  Country: US (occurrence: US)
  Receive Date: 20221031
  Receipt Date: 20221031
  Transmission Date: 20230113
  Serious: Yes (Other)
  Sender: FDA-Public Use
  Company Number: US-COOPERSURGICAL, INC.-US-2022CPS003673

PATIENT
  Age: 37 Year
  Sex: Female
  Weight: 100.23 kg

DRUGS (1)
  1. PARAGARD T 380A [Suspect]
     Active Substance: COPPER
     Indication: Product used for unknown indication
     Dosage: UNK
     Route: 015
     Dates: start: 20200720

REACTIONS (6)
  - Polycystic ovaries [Unknown]
  - Vulvovaginal pain [Recovered/Resolved]
  - Vaginal odour [Unknown]
  - Abnormal uterine bleeding [Unknown]
  - Heavy menstrual bleeding [Not Recovered/Not Resolved]
  - Device expulsion [Not Recovered/Not Resolved]

NARRATIVE: CASE EVENT DATE: 20201230
